FAERS Safety Report 16444880 (Version 1)
Quarter: 2019Q2

REPORT INFORMATION
  Report Type: Spontaneous
  Country: AU (occurrence: AU)
  Receive Date: 20190618
  Receipt Date: 20190618
  Transmission Date: 20190711
  Serious: Yes (Hospitalization, Other)
  Sender: FDA-Public Use
  Company Number: AU-ELI_LILLY_AND_COMPANY-AU201906007589

PATIENT
  Sex: Male

DRUGS (15)
  1. ZYPREXA [Suspect]
     Active Substance: OLANZAPINE
     Dosage: 10 MG, DAILY
     Route: 048
     Dates: start: 201801, end: 201808
  2. OLANZAPINE. [Suspect]
     Active Substance: OLANZAPINE
     Dosage: 7.5 MG, DAILY
     Route: 048
     Dates: start: 20140925
  3. ZYPREXA [Suspect]
     Active Substance: OLANZAPINE
     Indication: SCHIZOPHRENIA
     Dosage: UNK UNK, DAILY
     Route: 048
     Dates: start: 20140925, end: 201411
  4. OLANZAPINE. [Suspect]
     Active Substance: OLANZAPINE
     Indication: SCHIZOPHRENIA
     Dosage: 5 MG, DAILY
     Route: 048
     Dates: start: 20140925
  5. METOPROLOL. [Concomitant]
     Active Substance: METOPROLOL
     Indication: HYPERTENSION
     Dosage: 25 MG, BID
  6. ZYPREXA RELPREVV [Suspect]
     Active Substance: OLANZAPINE PAMOATE
     Indication: SCHIZOPHRENIA
     Dosage: 300 MG, EVERY TWO WEEKS
     Route: 030
     Dates: start: 20140925
  7. ZYPREXA [Suspect]
     Active Substance: OLANZAPINE
     Dosage: 5 MG, DAILY
     Route: 048
     Dates: start: 201508, end: 201512
  8. ZYPREXA [Suspect]
     Active Substance: OLANZAPINE
     Dosage: 10 MG, DAILY
     Route: 048
     Dates: start: 201512, end: 201601
  9. OLANZAPINE. [Suspect]
     Active Substance: OLANZAPINE
     Dosage: 10 MG, DAILY
     Route: 048
     Dates: start: 20140925
  10. ZYPREXA [Suspect]
     Active Substance: OLANZAPINE
     Dosage: UNK UNK, DAILY
     Route: 048
     Dates: start: 201503, end: 201505
  11. SALBUTAMOL [Concomitant]
     Active Substance: ALBUTEROL
     Indication: CHRONIC OBSTRUCTIVE PULMONARY DISEASE
     Dosage: UNK
  12. ZYPREXA [Suspect]
     Active Substance: OLANZAPINE
     Dosage: UNK UNK, DAILY
     Route: 048
     Dates: start: 201503, end: 201505
  13. ZYPREXA [Suspect]
     Active Substance: OLANZAPINE
     Dosage: 7.5 MG, DAILY
     Route: 048
     Dates: start: 201601, end: 201801
  14. ZYPREXA [Suspect]
     Active Substance: OLANZAPINE
     Dosage: 7.5 MG, DAILY
     Route: 048
     Dates: start: 201808, end: 201904
  15. ZYPREXA [Suspect]
     Active Substance: OLANZAPINE
     Dosage: 10 MG, DAILY
     Route: 048
     Dates: start: 201904

REACTIONS (7)
  - Hepatitis C [Unknown]
  - Hypertension [Unknown]
  - Mental disorder [Unknown]
  - Chronic obstructive pulmonary disease [Unknown]
  - General physical health deterioration [Unknown]
  - Blood glucose increased [Unknown]
  - Schizophrenia [Unknown]
